FAERS Safety Report 12869163 (Version 2)
Quarter: 2017Q1

REPORT INFORMATION
  Report Type: Spontaneous
  Country: US (occurrence: US)
  Receive Date: 20161020
  Receipt Date: 20170124
  Transmission Date: 20170428
  Serious: No
  Sender: FDA-Public Use
  Company Number: US-AMGEN-USASP2016104734

PATIENT
  Age: 72 Year
  Sex: Female

DRUGS (2)
  1. HIZENTRA [Concomitant]
     Active Substance: HUMAN IMMUNOGLOBULIN G
     Indication: IMMUNE SYSTEM DISORDER
     Dosage: UNK
     Dates: start: 2015
  2. REPATHA [Suspect]
     Active Substance: EVOLOCUMAB
     Indication: HYPERCHOLESTEROLAEMIA
     Dosage: 140 MG, Q2WK
     Route: 065
     Dates: start: 20160708, end: 201607

REACTIONS (5)
  - Gastrointestinal pain [Not Recovered/Not Resolved]
  - Constipation [Unknown]
  - Vomiting [Unknown]
  - Pyrexia [Unknown]
  - Drug dose omission [Unknown]

NARRATIVE: CASE EVENT DATE: 201607
